FAERS Safety Report 4818909-3 (Version None)
Quarter: 2005Q4

REPORT INFORMATION
  Report Type: 
  Country: None (occurrence: None)
  Receive Date: 20051101
  Receipt Date: 20051019
  Transmission Date: 20060501
  Serious: Yes (Death, Other)
  Sender: FDA-Public Use
  Company Number: 2005066497

PATIENT
  Sex: Female

DRUGS (1)
  1. VIAGRA [Suspect]
     Indication: PULMONARY HYPERTENSION
     Dosage: 50 MG (5 MG, 2 IN 1 D), ORAL
     Route: 048

REACTIONS (2)
  - ACUTE RESPIRATORY FAILURE [None]
  - BRONCHOPNEUMONIA [None]
